FAERS Safety Report 9427894 (Version 2)
Quarter: 2013Q3

REPORT INFORMATION
  Report Type: Spontaneous
  Country: VE (occurrence: VE)
  Receive Date: 20130730
  Receipt Date: 20130806
  Transmission Date: 20140515
  Serious: Yes (Death)
  Sender: FDA-Public Use
  Company Number: VE-PFIZER INC-2013221028

PATIENT
  Age: 63 Year
  Sex: Male

DRUGS (2)
  1. LIPITOR [Suspect]
     Dosage: UNK, 1X/DAY
     Route: 048
  2. PLAVIX [Concomitant]
     Dosage: 75 MG, 1X/DAY
     Route: 048

REACTIONS (1)
  - Myocardial infarction [Fatal]
